FAERS Safety Report 6214576-5 (Version None)
Quarter: 2009Q2

REPORT INFORMATION
  Report Type: 
  Country: None (occurrence: None)
  Receive Date: 20090604
  Receipt Date: 20090527
  Transmission Date: 20091009
  Serious: Yes (Hospitalization)
  Sender: FDA-Public Use
  Company Number: CZ-AVENTIS-200915125GDDC

PATIENT
  Age: 57 Year
  Sex: Male
  Weight: 72 kg

DRUGS (8)
  1. LANTUS [Suspect]
     Route: 058
     Dates: start: 20060413, end: 20060611
  2. LANTUS [Suspect]
     Route: 058
     Dates: start: 20060612, end: 20061008
  3. LANTUS [Suspect]
     Route: 058
     Dates: start: 20061009
  4. AUTOPEN INSULIN INJECTION PEN [Suspect]
  5. LOKREN [Concomitant]
     Route: 048
  6. SORTIS                             /01326101/ [Concomitant]
     Route: 048
  7. NOVORAPID [Concomitant]
     Dosage: DOSE: 10 IU/14 IU/6 IU
     Dates: end: 20061008
  8. NOVORAPID [Concomitant]
     Dosage: DOSE: 8 IU/ 8 IU / 6 IU
     Dates: start: 20061009

REACTIONS (3)
  - DERMATITIS ALLERGIC [None]
  - DIABETIC KETOACIDOSIS [None]
  - MYALGIA [None]
